FAERS Safety Report 9708564 (Version 1)
Quarter: 2013Q4

REPORT INFORMATION
  Report Type: Spontaneous
  Country: US (occurrence: US)
  Receive Date: 20131125
  Receipt Date: 20131125
  Transmission Date: 20140711
  Serious: Yes (Death)
  Sender: FDA-Public Use
  Company Number: US-AMGEN-USASP2013082079

PATIENT
  Age: 81 Year
  Sex: Female

DRUGS (5)
  1. PROLIA [Suspect]
     Indication: OSTEOPOROSIS
     Dosage: 60 MG, Q6MO
     Route: 058
     Dates: start: 20120822, end: 20130621
  2. TORSEMIDE [Concomitant]
  3. NOVOLOG [Concomitant]
  4. LANOXIN [Concomitant]
  5. CARVEDILOL [Concomitant]

REACTIONS (1)
  - Death [Fatal]
